FAERS Safety Report 18171323 (Version 2)
Quarter: 2020Q3

REPORT INFORMATION
  Report Type: Spontaneous
  Country: US (occurrence: US)
  Receive Date: 20200819
  Receipt Date: 20200825
  Transmission Date: 20201103
  Serious: Yes (Hospitalization, Other)
  Sender: FDA-Public Use
  Company Number: US-EUSA PHARMA (UK) LIMITED-2020US000187

PATIENT
  Sex: Female

DRUGS (2)
  1. SYLVANT [Suspect]
     Active Substance: SILTUXIMAB
     Indication: CYTOKINE RELEASE SYNDROME
     Dosage: 1200 MG/ MONTHLY
     Route: 042
     Dates: start: 202007
  2. SYLVANT [Suspect]
     Active Substance: SILTUXIMAB
     Dosage: 776 MG/ MONTHLY
     Route: 042
     Dates: start: 20200803

REACTIONS (6)
  - Suspected product contamination [Unknown]
  - Off label use [Unknown]
  - Product use in unapproved indication [Unknown]
  - Suspected transmission of an infectious agent via product [Unknown]
  - Hypersensitivity [Not Recovered/Not Resolved]
  - Pseudomonas infection [Not Recovered/Not Resolved]

NARRATIVE: CASE EVENT DATE: 202007
